FAERS Safety Report 14034588 (Version 1)
Quarter: 2017Q4

REPORT INFORMATION
  Report Type: Spontaneous
  Country: US (occurrence: US)
  Receive Date: 20171003
  Receipt Date: 20171003
  Transmission Date: 20180321
  Serious: No
  Sender: FDA-Public Use
  Company Number: US-PERRIGO-17US002099

PATIENT
  Sex: Female

DRUGS (2)
  1. NYSTOP [Suspect]
     Active Substance: NYSTATIN
     Dosage: UNKNOWN, UNKNOWN
     Route: 061
     Dates: start: 20170215
  2. NYSTOP [Suspect]
     Active Substance: NYSTATIN
     Indication: PRODUCT USED FOR UNKNOWN INDICATION
     Dosage: UNKNOWN, UNKNOWN
     Route: 061
     Dates: start: 20170215

REACTIONS (1)
  - Application site pain [Unknown]

NARRATIVE: CASE EVENT DATE: 20170215
